FAERS Safety Report 4975773-X (Version None)
Quarter: 2006Q2

REPORT INFORMATION
  Report Type: 
  Country: None (occurrence: None)
  Receive Date: 20060418
  Receipt Date: 20060115
  Transmission Date: 20061013
  Serious: Yes (Hospitalization)
  Sender: FDA-Public Use
  Company Number: US-BOEHRINGER INGELHEIM PHARMACEUTICALS, INC.-2006-BP-00449BP

PATIENT
  Age: 42 Year
  Sex: Male

DRUGS (12)
  1. VIRAMUNE [Suspect]
     Indication: HIV INFECTION
     Route: 048
     Dates: start: 20050901
  2. ACYCLOVIR [Concomitant]
  3. AZITHROMYCIN [Concomitant]
  4. ALLOPURINOL [Concomitant]
  5. DAPSONE [Concomitant]
  6. DUTASTERIDE [Concomitant]
  7. TRUVADA [Concomitant]
  8. PREVACID [Concomitant]
  9. LORAZEPAM [Concomitant]
  10. MORPHINE [Concomitant]
  11. COMPAZINE [Concomitant]
  12. AMBIEN [Concomitant]

REACTIONS (2)
  - INGUINAL MASS [None]
  - LYMPHOMA [None]
